FAERS Safety Report 4859948-6 (Version None)
Quarter: 2005Q4

REPORT INFORMATION
  Report Type: 
  Country: None (occurrence: None)
  Receive Date: 20051219
  Receipt Date: 20051207
  Transmission Date: 20060501
  Serious: Yes (Other)
  Sender: FDA-Public Use
  Company Number: CN-BRISTOL-MYERS SQUIBB COMPANY-13206107

PATIENT
  Age: 32 Year
  Sex: Female

DRUGS (1)
  1. NYSTATIN [Suspect]
     Indication: VAGINAL INFECTION
     Dosage: VAGINAL-EXTERNAL APPLICATION
     Route: 067
     Dates: start: 20051130, end: 20051201

REACTIONS (2)
  - ABORTION SPONTANEOUS [None]
  - PREGNANCY [None]
